FAERS Safety Report 6789957-1 (Version None)
Quarter: 2010Q2

REPORT INFORMATION
  Report Type: 
  Country: None (occurrence: None)
  Receive Date: 20100624
  Receipt Date: 20100609
  Transmission Date: 20101027
  Serious: Yes (Hospitalization)
  Sender: FDA-Public Use
  Company Number: US-MYLANLABS-2010S1010177

PATIENT
  Age: 17 Year
  Sex: Male

DRUGS (8)
  1. INFLIXIMAB [Suspect]
     Indication: COLITIS ULCERATIVE
     Dosage: INFUSION
     Route: 065
  2. PREDNISONE [Suspect]
     Indication: COLITIS ULCERATIVE
     Route: 065
  3. PREDNISONE [Suspect]
     Route: 065
  4. MERCAPTOPURINE [Suspect]
     Indication: COLITIS ULCERATIVE
     Route: 065
  5. MESALAZINE [Concomitant]
     Indication: COLITIS ULCERATIVE
     Route: 065
  6. MEROPENEM [Concomitant]
     Indication: MENINGITIS LISTERIA
     Route: 065
  7. RIFAMPICIN [Concomitant]
     Indication: MENINGITIS LISTERIA
     Route: 065
  8. METHYLPREDNISOLONE [Concomitant]
     Indication: MENINGITIS LISTERIA
     Route: 065

REACTIONS (2)
  - LISTERIOSIS [None]
  - MENINGITIS LISTERIA [None]
